FAERS Safety Report 12616478 (Version 5)
Quarter: 2023Q1

REPORT INFORMATION
  Report Type: Spontaneous
  Country: US (occurrence: US)
  Receive Date: 20160802
  Receipt Date: 20230103
  Transmission Date: 20230418
  Serious: Yes (Other)
  Sender: FDA-Public Use
  Company Number: US-SAOL THERAPEUTICS-2016SAO00290

PATIENT
  Sex: Female

DRUGS (8)
  1. BACLOFEN [Suspect]
     Active Substance: BACLOFEN
     Indication: Multiple sclerosis
     Dosage: 130 MICROGRAM, QD
     Route: 037
     Dates: start: 20100429
  2. BACLOFEN [Suspect]
     Active Substance: BACLOFEN
     Indication: Muscle spasticity
     Dosage: 109 MICROGRAM, QD
     Route: 037
  3. VITAMIN D3 [Concomitant]
     Active Substance: CHOLECALCIFEROL
  4. IBUPROFEN [Concomitant]
     Active Substance: IBUPROFEN
  5. FLONASE [Concomitant]
     Active Substance: FLUTICASONE PROPIONATE
  6. LYRICA [Concomitant]
     Active Substance: PREGABALIN
  7. TRAMADOL [Concomitant]
     Active Substance: TRAMADOL
  8. AUBAGIO [Concomitant]
     Active Substance: TERIFLUNOMIDE

REACTIONS (10)
  - Radiculopathy [Recovered/Resolved]
  - Sciatica [Unknown]
  - Device physical property issue [Unknown]
  - Fall [Unknown]
  - Back pain [Unknown]
  - Intervertebral disc protrusion [Unknown]
  - Intervertebral disc degeneration [Unknown]
  - Floating patella [Unknown]
  - Therapy non-responder [Unknown]
  - Device dislocation [Unknown]

NARRATIVE: CASE EVENT DATE: 20100101
